FAERS Safety Report 24869722 (Version 6)
Quarter: 2025Q1

REPORT INFORMATION
  Report Type: Spontaneous
  Country: CO (occurrence: CO)
  Receive Date: 20250121
  Receipt Date: 20250325
  Transmission Date: 20250408
  Serious: No
  Sender: PFIZER
  Company Number: CO-PFIZER INC-202500011790

PATIENT
  Age: 9 Year
  Sex: Female
  Weight: 24 kg

DRUGS (2)
  1. GENOTROPIN [Suspect]
     Active Substance: SOMATROPIN
     Indication: Short stature
     Dosage: 0.6 MG, DAILY
     Route: 058
     Dates: start: 2022, end: 202409
  2. SALMETEROL [Concomitant]
     Active Substance: SALMETEROL
     Indication: Asthma

REACTIONS (3)
  - Device mechanical issue [Recovered/Resolved]
  - Device issue [Recovered/Resolved]
  - Off label use [Unknown]

NARRATIVE: CASE EVENT DATE: 20240901
